FAERS Safety Report 5419599-1 (Version None)
Quarter: 2007Q3

REPORT INFORMATION
  Report Type: 
  Country: None (occurrence: None)
  Receive Date: 20070816
  Receipt Date: 20070816
  Transmission Date: 20080115
  Serious: No
  Sender: FDA-Public Use
  Company Number: None

PATIENT
  Sex: Female
  Weight: 90.2658 kg

DRUGS (2)
  1. LEVOTHYROXINE 0.137 MG MYLAN [Suspect]
     Indication: POST PROCEDURAL HYPOTHYROIDISM
     Dosage: 0.137 MG DAILY PO
     Route: 048
     Dates: start: 20070213, end: 20070608
  2. LEVOTHYROXINE 0.125 MG MYLAN [Suspect]
     Indication: POST PROCEDURAL HYPOTHYROIDISM
     Dosage: 0.125 MG DAILY PO
     Route: 048
     Dates: start: 20070609, end: 20070723

REACTIONS (4)
  - ANXIETY [None]
  - FATIGUE [None]
  - FEELING ABNORMAL [None]
  - INSOMNIA [None]
